FAERS Safety Report 4648700-2 (Version None)
Quarter: 2005Q2

REPORT INFORMATION
  Report Type: 
  Country: None (occurrence: None)
  Receive Date: 20050427
  Receipt Date: 20050411
  Transmission Date: 20051028
  Serious: Yes (Life-Threatening, Hospitalization)
  Sender: FDA-Public Use
  Company Number: DSA_26325_2005

PATIENT
  Age: 69 Year
  Sex: Female

DRUGS (5)
  1. TILDIEM - SLOW RELEASE ^SYNTHELABO^ [Suspect]
     Indication: ANGINA PECTORIS
     Dosage: 200 MG DAILY PO
     Route: 048
     Dates: start: 20041215, end: 20041227
  2. RAMIPRIL [Concomitant]
  3. BENDROFLUAZIDE [Concomitant]
  4. DOMPERIDONE [Concomitant]
  5. FYBOGEL [Concomitant]

REACTIONS (3)
  - ACTIVITIES OF DAILY LIVING IMPAIRED [None]
  - SKIN DISORDER [None]
  - SKIN EXFOLIATION [None]
